FAERS Safety Report 4314701-7 (Version None)
Quarter: 2004Q1

REPORT INFORMATION
  Report Type: 
  Country: None (occurrence: None)
  Receive Date: 20040308
  Receipt Date: 20040220
  Transmission Date: 20041129
  Serious: Yes (Hospitalization, Other)
  Sender: FDA-Public Use
  Company Number: 2004-CN-00060CN

PATIENT
  Age: 48 Year
  Sex: Female

DRUGS (1)
  1. DIXARIT [Suspect]
     Dosage: 0.05 MG (0.025 MG, 1 BID) PO
     Route: 048
     Dates: start: 20020801

REACTIONS (10)
  - ABDOMINAL PAIN UPPER [None]
  - BACK PAIN [None]
  - DIARRHOEA [None]
  - DRY THROAT [None]
  - FEELING ABNORMAL [None]
  - HALLUCINATION [None]
  - LETHARGY [None]
  - MEDICATION ERROR [None]
  - SPLENIC INFARCTION [None]
  - THROMBOSIS [None]
